FAERS Safety Report 6861998-5 (Version None)
Quarter: 2010Q3

REPORT INFORMATION
  Report Type: 
  Country: None (occurrence: None)
  Receive Date: 20100720
  Receipt Date: 20100720
  Transmission Date: 20110219
  Serious: Yes (Hospitalization)
  Sender: FDA-Public Use
  Company Number: None

PATIENT
  Sex: Male
  Weight: 99.3377 kg

DRUGS (5)
  1. REVLIMID [Suspect]
     Indication: MYELODYSPLASTIC SYNDROME
     Dosage: 20 MG. DAILY FOR 21 DAYS ORAL
     Route: 048
     Dates: start: 20100519, end: 20100607
  2. METFORMIN HCL [Concomitant]
  3. GLIMEPIRIDE [Concomitant]
  4. HYDROCODONE BITARTRATE [Concomitant]
  5. IBUPROFEN TABLETS [Concomitant]

REACTIONS (6)
  - APHAGIA [None]
  - DEHYDRATION [None]
  - DYSPNOEA [None]
  - HYPOGLYCAEMIA [None]
  - TOOTH ABSCESS [None]
  - TOOTH DISORDER [None]
